FAERS Safety Report 9879605 (Version 1)
Quarter: 2014Q1

REPORT INFORMATION
  Report Type: Spontaneous
  Country: JP (occurrence: JP)
  Receive Date: 20140206
  Receipt Date: 20140206
  Transmission Date: 20141002
  Serious: Yes (Other)
  Sender: FDA-Public Use
  Company Number: JP-ROXANE LABORATORIES, INC.-2014-RO-00149RO

PATIENT
  Age: 36 Year
  Sex: Female

DRUGS (7)
  1. NAPROXEN [Suspect]
     Indication: FIBROMYALGIA
  2. PURIFIED PROTEIN DERIVATIVE [Suspect]
     Indication: TUBERCULIN TEST
     Route: 023
  3. NEUROTROPIN [Concomitant]
     Indication: FIBROMYALGIA
  4. ANTIDEPRESSANT [Concomitant]
     Indication: PRODUCT USED FOR UNKNOWN INDICATION
  5. THYROID HORMONE PREPARATION [Concomitant]
     Indication: PRODUCT USED FOR UNKNOWN INDICATION
  6. VITAMIN PREPARATION [Concomitant]
     Indication: PRODUCT USED FOR UNKNOWN INDICATION
  7. CONTRACEPTIVES [Concomitant]
     Indication: ENDOMETRIOSIS
     Route: 048

REACTIONS (1)
  - Anaphylactic reaction [Recovered/Resolved]
